FAERS Safety Report 23843415 (Version 1)
Quarter: 2024Q2

REPORT INFORMATION
  Report Type: Spontaneous
  Country: PT (occurrence: PT)
  Receive Date: 20240510
  Receipt Date: 20240510
  Transmission Date: 20240716
  Serious: Yes (Life-Threatening)
  Sender: FDA-Public Use
  Company Number: None

PATIENT
  Age: 58 Year
  Sex: Female

DRUGS (9)
  1. ROCURONIUM BROMIDE [Suspect]
     Active Substance: ROCURONIUM BROMIDE
     Indication: Product used for unknown indication
     Dosage: SINGLE DOSE?FORM OF ADMIN: SOLUTION FOR INJECTION OR INFUSION
     Route: 042
     Dates: start: 20240418
  2. CEFTRIAXONE [Suspect]
     Active Substance: CEFTRIAXONE\CEFTRIAXONE SODIUM
     Indication: Product used for unknown indication
     Dosage: SINGLE DOSE?POWDER FOR SOLUTION FOR INJECTION OR INFUSION
     Route: 042
  3. SODIUM BICARBONATE [Suspect]
     Active Substance: SODIUM BICARBONATE
     Indication: Product used for unknown indication
     Dosage: SINGLE DOSE?SOLUTION FOR INFUSION
     Route: 042
     Dates: start: 20240418
  4. TRANEXAMIC ACID [Suspect]
     Active Substance: TRANEXAMIC ACID
     Indication: Product used for unknown indication
     Dosage: SINGLE DOSE?SOLUTION FOR INJECTION
     Route: 042
     Dates: start: 20240418
  5. PHYTONADIONE [Suspect]
     Active Substance: PHYTONADIONE
     Indication: Product used for unknown indication
     Dosage: SINGLE DOSE?SOLUTION FOR INJECTION
     Route: 042
     Dates: start: 20240418
  6. FENTANYL CITRATE [Suspect]
     Active Substance: FENTANYL CITRATE
     Indication: Product used for unknown indication
     Dosage: SINGLE DOSE?SOLUTION FOR INJECTION
     Route: 042
     Dates: start: 20240418
  7. LIDOCAINE HYDROCHLORIDE [Suspect]
     Active Substance: LIDOCAINE HYDROCHLORIDE
     Indication: Product used for unknown indication
     Dosage: SINGLE DOSE?SOLUTION FOR INJECTION
     Route: 042
     Dates: start: 20240418
  8. PROPOFOL [Suspect]
     Active Substance: PROPOFOL
     Indication: Product used for unknown indication
     Dosage: SINGLE DOSE?EMULSION FOR INJECTION OR INFUSION
     Route: 042
     Dates: start: 20240418
  9. DEXAMETHASONE [Suspect]
     Active Substance: DEXAMETHASONE
     Indication: Product used for unknown indication
     Dosage: SINGLE DOSE?SOLUTION FOR INJECTION OR INFUSION
     Route: 042
     Dates: start: 20240418

REACTIONS (1)
  - Anaphylactic reaction [Recovering/Resolving]

NARRATIVE: CASE EVENT DATE: 20240418
